FAERS Safety Report 18109493 (Version 1)
Quarter: 2020Q3

REPORT INFORMATION
  Report Type: Spontaneous
  Country: US (occurrence: US)
  Receive Date: 20200804
  Receipt Date: 20200804
  Transmission Date: 20201103
  Serious: Yes (Other)
  Sender: FDA-Public Use
  Company Number: US-ELI_LILLY_AND_COMPANY-US202007010716

PATIENT
  Sex: Male

DRUGS (22)
  1. HUMULIN R [Suspect]
     Active Substance: INSULIN HUMAN
     Indication: DIABETES MELLITUS
     Dosage: 110 U, EACH MORNING
     Route: 065
  2. HUMULIN R U?500 [Suspect]
     Active Substance: INSULIN HUMAN
     Dosage: 80 U, DAILY (DINNER)
     Route: 065
  3. HUMULIN R U?500 [Suspect]
     Active Substance: INSULIN HUMAN
     Indication: DIABETES MELLITUS
     Dosage: 110 U, EACH MORNING
     Route: 065
     Dates: start: 2019
  4. HUMULIN R U?500 [Suspect]
     Active Substance: INSULIN HUMAN
     Indication: DIABETES MELLITUS
     Dosage: 110 U, EACH MORNING
     Route: 065
     Dates: start: 2019
  5. HUMULIN R U?500 [Suspect]
     Active Substance: INSULIN HUMAN
     Dosage: 110 U, EACH MORNING
     Route: 065
  6. HUMULIN R U?500 [Suspect]
     Active Substance: INSULIN HUMAN
     Dosage: 110 U, EACH MORNING
     Route: 065
  7. HUMULIN R U?500 [Suspect]
     Active Substance: INSULIN HUMAN
     Dosage: 80 U, DAILY (DINNER)
     Route: 065
  8. HUMULIN R U?500 [Suspect]
     Active Substance: INSULIN HUMAN
     Dosage: 80 U, DAILY (DINNER)
     Route: 065
  9. HUMULIN R U?500 [Suspect]
     Active Substance: INSULIN HUMAN
     Dosage: 30 U, DAILY (LUNCH)
     Route: 065
     Dates: start: 2019
  10. HUMULIN R U?500 [Suspect]
     Active Substance: INSULIN HUMAN
     Dosage: 80 U, DAILY (DINNER)
     Route: 065
     Dates: start: 2019
  11. HUMULIN R [Suspect]
     Active Substance: INSULIN HUMAN
     Dosage: 30 U, DAILY (LUNCH)
     Route: 065
  12. HUMULIN R U?500 [Suspect]
     Active Substance: INSULIN HUMAN
     Dosage: 80 U, DAILY (DINNER)
     Route: 065
     Dates: start: 2019
  13. HUMULIN R U?500 [Suspect]
     Active Substance: INSULIN HUMAN
     Dosage: 30 U, DAILY (LUNCH)
     Route: 065
  14. HUMULIN R U?500 [Suspect]
     Active Substance: INSULIN HUMAN
     Dosage: 30 U, DAILY (LUNCH)
     Route: 065
     Dates: start: 2019
  15. HUMULIN R U?500 [Suspect]
     Active Substance: INSULIN HUMAN
     Dosage: 30 U, DAILY (LUNCH)
     Route: 065
  16. HUMULIN R [Suspect]
     Active Substance: INSULIN HUMAN
     Dosage: 80 U, DAILY (DINNER)
     Route: 065
  17. HUMULIN R U?500 [Suspect]
     Active Substance: INSULIN HUMAN
     Dosage: 30 U, DAILY (LUNCH)
     Route: 065
     Dates: start: 2019
  18. HUMULIN R U?500 [Suspect]
     Active Substance: INSULIN HUMAN
     Dosage: 80 U, DAILY (DINNER)
     Route: 065
     Dates: start: 2019
  19. HUMULIN R U?500 [Suspect]
     Active Substance: INSULIN HUMAN
     Dosage: 30 U, DAILY (LUNCH)
     Route: 065
  20. GLUCAGON. [Concomitant]
     Active Substance: GLUCAGON
     Indication: PRODUCT USED FOR UNKNOWN INDICATION
  21. HUMULIN R U?500 [Suspect]
     Active Substance: INSULIN HUMAN
     Indication: DIABETES MELLITUS
     Dosage: 110 U, EACH MORNING
     Route: 065
     Dates: start: 2019
  22. HUMULIN R U?500 [Suspect]
     Active Substance: INSULIN HUMAN
     Dosage: 110 U, EACH MORNING
     Route: 065

REACTIONS (7)
  - Peripheral swelling [Unknown]
  - Blood glucose decreased [Not Recovered/Not Resolved]
  - Myocardial infarction [Unknown]
  - Cardiac disorder [Unknown]
  - Vision blurred [Unknown]
  - Blood glucose increased [Not Recovered/Not Resolved]
  - Accidental underdose [Unknown]

NARRATIVE: CASE EVENT DATE: 2000
